FAERS Safety Report 5764691-5 (Version None)
Quarter: 2008Q2

REPORT INFORMATION
  Report Type: 
  Country: None (occurrence: None)
  Receive Date: 20080611
  Receipt Date: 20060612
  Transmission Date: 20081010
  Serious: Yes (Other)
  Sender: FDA-Public Use
  Company Number: PHBS2006JP08596

PATIENT
  Sex: Female

DRUGS (5)
  1. GLEEVEC [Suspect]
     Indication: CHRONIC MYELOID LEUKAEMIA
     Dosage: 400 MG, UNK
     Route: 048
     Dates: start: 20021206, end: 20060604
  2. GLEEVEC [Suspect]
     Dosage: 300 MG, QD
     Dates: start: 20060706
  3. DAONIL [Suspect]
     Dates: start: 20021206, end: 20060604
  4. GLUCOBAY [Concomitant]
     Dosage: 300 MG, UNK
     Dates: start: 20060622
  5. NATEGLINIDE [Concomitant]

REACTIONS (1)
  - BLOOD GLUCOSE DECREASED [None]
